FAERS Safety Report 21164717 (Version 1)
Quarter: 2022Q3

REPORT INFORMATION
  Report Type: Other
  Country: None (occurrence: US)
  Receive Date: 20220803
  Receipt Date: 20220803
  Transmission Date: 20221026
  Serious: Yes (Hospitalization, Other)
  Sender: FDA-Public Use
  Company Number: US-Nuvo Pharmaceuticals Inc-2131478

PATIENT
  Age: 69 Year
  Sex: Male

DRUGS (1)
  1. PHENTERMINE HYDROCHLORIDE [Suspect]
     Active Substance: PHENTERMINE HYDROCHLORIDE
     Indication: Weight decreased
     Route: 048

REACTIONS (12)
  - Multiple organ dysfunction syndrome [Recovering/Resolving]
  - Intentional overdose [Unknown]
  - Atrial fibrillation [Unknown]
  - Supraventricular tachycardia [Unknown]
  - Bundle branch block right [Unknown]
  - Atelectasis [Unknown]
  - Leukocytosis [Unknown]
  - Rhabdomyolysis [Unknown]
  - Acute kidney injury [Unknown]
  - Metabolic acidosis [Unknown]
  - Hypertransaminasaemia [Unknown]
  - Stress cardiomyopathy [Unknown]
